FAERS Safety Report 7018057-0 (Version None)
Quarter: 2010Q3

REPORT INFORMATION
  Report Type: 
  Country: None (occurrence: None)
  Receive Date: 20100928
  Receipt Date: 20100916
  Transmission Date: 20110219
  Serious: Yes (Hospitalization)
  Sender: FDA-Public Use
  Company Number: FR-CELGENEUS-056-21880-10091499

PATIENT
  Sex: Female
  Weight: 55 kg

DRUGS (4)
  1. REVLIMID [Suspect]
     Route: 048
     Dates: start: 20091225, end: 20100110
  2. DEXAMETHASONE [Concomitant]
     Indication: PRODUCT USED FOR UNKNOWN INDICATION
     Route: 048
     Dates: start: 20091225, end: 20100110
  3. SOTALOL [Concomitant]
     Indication: ATRIAL FIBRILLATION
     Route: 065
  4. PREVISCAN [Concomitant]
     Indication: ATRIAL FIBRILLATION
     Route: 065

REACTIONS (2)
  - LUNG DISORDER [None]
  - PANCYTOPENIA [None]
